FAERS Safety Report 20363323 (Version 1)
Quarter: 2022Q1

REPORT INFORMATION
  Report Type: Spontaneous
  Country: US (occurrence: None)
  Receive Date: 20220121
  Receipt Date: 20220121
  Transmission Date: 20220423
  Serious: Yes (Life-Threatening, Other)
  Sender: FDA-Public Use
  Company Number: None

PATIENT
  Age: 33 Year
  Sex: Female
  Weight: 147.9 kg

DRUGS (1)
  1. BAMLANIVIMAB\ETESEVIMAB [Suspect]
     Active Substance: BAMLANIVIMAB\ETESEVIMAB
     Indication: COVID-19 prophylaxis
     Dosage: 700 MG ONCE;?
     Route: 042
     Dates: start: 20220120, end: 20220120

REACTIONS (6)
  - Abdominal rigidity [None]
  - Nausea [None]
  - Flushing [None]
  - Chest discomfort [None]
  - Throat tightness [None]
  - Infusion related reaction [None]

NARRATIVE: CASE EVENT DATE: 20220120
